FAERS Safety Report 24010208 (Version 1)
Quarter: 2024Q2

REPORT INFORMATION
  Report Type: Spontaneous
  Country: US (occurrence: US)
  Receive Date: 20240625
  Receipt Date: 20240625
  Transmission Date: 20240716
  Serious: Yes (Life-Threatening, Hospitalization)
  Sender: FDA-Public Use
  Company Number: US-BAUSCH-BL-2024-009597

PATIENT
  Age: 41 Year
  Sex: Male

DRUGS (1)
  1. BUPROPION [Suspect]
     Active Substance: BUPROPION
     Indication: Product used for unknown indication
     Dosage: APPROXIMATELY 150 EXTENDED-RELEASE TABLETS
     Route: 065

REACTIONS (4)
  - Circulatory collapse [Recovered/Resolved]
  - Toxicity to various agents [Recovered/Resolved]
  - Bezoar [Recovered/Resolved]
  - Overdose [Unknown]
